FAERS Safety Report 5530388-X (Version None)
Quarter: 2007Q4

REPORT INFORMATION
  Report Type: 
  Country: None (occurrence: None)
  Receive Date: 20071130
  Receipt Date: 20071009
  Transmission Date: 20080405
  Serious: No
  Sender: FDA-Public Use
  Company Number: US-ABBOTT-07P-163-0420455-00

PATIENT

DRUGS (6)
  1. ZEMPLAR [Suspect]
     Indication: HAEMODIALYSIS
  2. CALCIJEX [Suspect]
     Indication: HAEMODIALYSIS
  3. TUMS [Concomitant]
     Indication: DRUG USE FOR UNKNOWN INDICATION
  4. CALCIUM ACETATE [Concomitant]
     Indication: DRUG USE FOR UNKNOWN INDICATION
  5. LANTHANUM CARBONATE [Concomitant]
     Indication: DRUG USE FOR UNKNOWN INDICATION
  6. MAGNESIUM OXIDE [Concomitant]
     Indication: DRUG USE FOR UNKNOWN INDICATION

REACTIONS (3)
  - BLOOD CALCIUM DECREASED [None]
  - BLOOD PARATHYROID HORMONE DECREASED [None]
  - BLOOD PHOSPHORUS INCREASED [None]
